FAERS Safety Report 4435039-3 (Version None)
Quarter: 2004Q3

REPORT INFORMATION
  Report Type: 
  Country: None (occurrence: None)
  Receive Date: 20040726
  Receipt Date: 20040331
  Transmission Date: 20050211
  Serious: No
  Sender: FDA-Public Use
  Company Number: USA040260300

PATIENT
  Age: 57 Year
  Sex: Female
  Weight: 53 kg

DRUGS (11)
  1. FORTEO [Suspect]
     Indication: OSTEOPOROSIS
     Dosage: 20 UG/1 DAY
     Dates: start: 20040128, end: 20040225
  2. CALCIUM [Concomitant]
  3. VITAMIN D [Concomitant]
  4. MULTI-VITAMIN [Concomitant]
  5. VITAMIN C [Concomitant]
  6. OMEGA 3 (FISH OIL) [Concomitant]
  7. VITAMIN E [Concomitant]
  8. GRAPE SEED EXTRACT [Concomitant]
  9. SOY ISOFLAVONES [Concomitant]
  10. FOSAMAX [Concomitant]
  11. GLUCOSAMINE [Concomitant]

REACTIONS (4)
  - ARTHRALGIA [None]
  - DIZZINESS [None]
  - NAUSEA [None]
  - PALPITATIONS [None]
